FAERS Safety Report 7020872-4 (Version None)
Quarter: 2010Q3

REPORT INFORMATION
  Report Type: 
  Country: None (occurrence: None)
  Receive Date: 20100929
  Receipt Date: 20100920
  Transmission Date: 20110219
  Serious: Yes (Other)
  Sender: FDA-Public Use
  Company Number: GB-PFIZER INC-2010111446

PATIENT
  Age: 59 Year
  Sex: Female
  Weight: 94 kg

DRUGS (19)
  1. CHAMPIX [Suspect]
     Indication: SMOKING CESSATION THERAPY
     Dosage: 1 MG, 2X/DAY
     Route: 048
     Dates: start: 20100622, end: 20100830
  2. ACETAMINOPHEN AND CODEINE PHOSPHATE [Concomitant]
     Indication: BACK PAIN
     Dosage: 500MG/30MG CAPSULES ONE OR TWO FOUR TIMES DAILY
     Dates: start: 20011030
  3. LANSOPRAZOLE [Concomitant]
     Indication: GASTROOESOPHAGEAL REFLUX DISEASE
     Dosage: 15 MG, 1X/DAY IN MORNING
     Dates: start: 20011120
  4. ATORVASTATIN [Concomitant]
     Dosage: 40 MG, 1X/DAY
     Dates: start: 20060304
  5. VALSARTAN [Concomitant]
     Indication: DIABETIC NEUROPATHY
     Dosage: 160 MG, 1X/DAY
     Dates: start: 20060816
  6. FUROSEMIDE [Concomitant]
     Indication: DYSPNOEA
     Dosage: 40 MG, 1X/DAY IN MORNING
     Dates: start: 20060821
  7. ACETYLSALICYLIC ACID [Concomitant]
     Dosage: 75 MG, 1X/DAY
     Dates: start: 20060824
  8. SALBUTAMOL [Concomitant]
     Indication: ASTHMA
     Dosage: 2 DF, AS NEEDED
     Dates: start: 20080218
  9. CLENIL [Concomitant]
     Indication: ASTHMA
     Dosage: 2 DF, 2X/DAY
     Route: 055
     Dates: start: 20090811
  10. LIRAGLUTIDE (NN2211) [Concomitant]
     Indication: TYPE 2 DIABETES MELLITUS
     Dosage: 1.8 MG, 1X/DAY
     Dates: start: 20091026
  11. NICORANDIL [Concomitant]
     Indication: ANGINA PECTORIS
     Dosage: 10 MG, 2X/DAY
     Dates: start: 20100426
  12. SLOZEM [Concomitant]
     Indication: ANGINA PECTORIS
     Dosage: 120 MG, 1X/DAY
     Dates: start: 20100622
  13. CLOPIDOGREL [Concomitant]
     Dosage: 75 MG, 1X/DAY
     Dates: start: 20100824
  14. GLYCERYL TRINITRATE [Concomitant]
     Indication: ANGINA PECTORIS
     Dosage: 1 DF, AS NEEDED
     Dates: start: 20020723
  15. DIPROBASE OINTMENT [Concomitant]
     Indication: DRY SKIN
     Dosage: UNK
     Dates: start: 20050303
  16. DERMOL SOL [Concomitant]
     Indication: DRY SKIN
     Dosage: UNK
     Dates: start: 20060213
  17. ELANTAN - SLOW RELEASE [Concomitant]
     Indication: ANGINA PECTORIS
     Dosage: 1X/DAY IN MORNING
     Dates: start: 20080717
  18. CARBOMER [Concomitant]
     Indication: DRY EYE
     Dosage: 1 DF, AS NEEDED
     Dates: start: 20100218
  19. MULTIPLE VITAMINS [Concomitant]
     Dosage: ONE CAPSULE EVERYDAY
     Dates: start: 20080325

REACTIONS (4)
  - DRUG WITHDRAWAL SYNDROME [None]
  - FEELING JITTERY [None]
  - NERVOUSNESS [None]
  - TREMOR [None]
